FAERS Safety Report 5196582-5 (Version None)
Quarter: 2006Q4

REPORT INFORMATION
  Report Type: 
  Country: None (occurrence: None)
  Receive Date: 20061228
  Receipt Date: 20061228
  Transmission Date: 20070319
  Serious: Yes (Death)
  Sender: FDA-Public Use
  Company Number: None

PATIENT
  Age: 17 Month
  Sex: Male

DRUGS (1)
  1. SYNAGIS [Suspect]
     Dosage: IM
     Route: 030

REACTIONS (1)
  - CARDIAC ARREST [None]
